FAERS Safety Report 9136698 (Version 1)
Quarter: 2013Q1

REPORT INFORMATION
  Report Type: Spontaneous
  Country: US (occurrence: US)
  Receive Date: 20130304
  Receipt Date: 20130304
  Transmission Date: 20140127
  Serious: No
  Sender: FDA-Public Use
  Company Number: US-ABBOTT-12P-163-1024566-00

PATIENT
  Age: 61 Year
  Sex: Male
  Weight: 81.72 kg

DRUGS (5)
  1. ANDROGEL [Suspect]
     Indication: BLOOD TESTOSTERONE DECREASED
     Dosage: PACKETS. APPLIES DAILY TO SHOULDERS
     Dates: start: 2012
  2. ASPIRIN [Concomitant]
     Indication: CEREBROVASCULAR ACCIDENT PROPHYLAXIS
  3. LOVASTATIN [Concomitant]
     Indication: CEREBROVASCULAR ACCIDENT PROPHYLAXIS
  4. UNKNOWN MEDICATION [Concomitant]
     Indication: ANTIDEPRESSANT THERAPY
  5. UNKNOWN MEDICATION [Concomitant]
     Indication: ANXIETY

REACTIONS (4)
  - Product quality issue [Unknown]
  - Blood testosterone decreased [Unknown]
  - Fatigue [Unknown]
  - Stress [Unknown]
